FAERS Safety Report 20016500 (Version 1)
Quarter: 2021Q4

REPORT INFORMATION
  Report Type: Spontaneous
  Country: US (occurrence: None)
  Receive Date: 20211104
  Receipt Date: 20211104
  Transmission Date: 20220303
  Serious: No
  Sender: FDA-Public Use
  Company Number: None

PATIENT
  Age: 65 Year
  Sex: Female
  Weight: 55.35 kg

DRUGS (1)
  1. CLOPIDOGREL BISULFATE [Suspect]
     Active Substance: CLOPIDOGREL BISULFATE
     Indication: Anticoagulant therapy
     Dosage: OTHER QUANTITY : 90 TABLET(S);?FREQUENCY : DAILY;?
     Route: 048
     Dates: start: 20211027, end: 20211031

REACTIONS (6)
  - Hypertension [None]
  - Tachycardia [None]
  - Fatigue [None]
  - Peripheral swelling [None]
  - Joint swelling [None]
  - Dyspraxia [None]

NARRATIVE: CASE EVENT DATE: 20211031
